FAERS Safety Report 7717354-0 (Version None)
Quarter: 2011Q3

REPORT INFORMATION
  Report Type: 
  Country: None (occurrence: None)
  Receive Date: 20110830
  Receipt Date: 20110822
  Transmission Date: 20111222
  Serious: Yes (Hospitalization, Other)
  Sender: FDA-Public Use
  Company Number: JP-JNJFOC-20110605308

PATIENT
  Sex: Female
  Weight: 0.5 kg

DRUGS (3)
  1. REMICADE [Suspect]
     Indication: MATERNAL EXPOSURE DURING PREGNANCY
     Dates: start: 20040901, end: 20050101
  2. TPN [Concomitant]
     Indication: MATERNAL EXPOSURE DURING PREGNANCY
  3. ALL OTHER THERAPEUTIC PRODUCTS [Concomitant]
     Indication: MATERNAL EXPOSURE DURING PREGNANCY

REACTIONS (4)
  - SMALL FOR DATES BABY [None]
  - FOETAL GROWTH RESTRICTION [None]
  - PREMATURE BABY [None]
  - FOETAL DISTRESS SYNDROME [None]
